FAERS Safety Report 20102084 (Version 2)
Quarter: 2021Q4

REPORT INFORMATION
  Report Type: Spontaneous
  Country: PT (occurrence: PT)
  Receive Date: 20211123
  Receipt Date: 20211201
  Transmission Date: 20220303
  Serious: Yes (Other)
  Sender: FDA-Public Use
  Company Number: PT-AMERICAN REGENT INC-2021003073

PATIENT
  Age: 51 Year
  Sex: Male
  Weight: 65 kg

DRUGS (2)
  1. VENOFER [Suspect]
     Active Substance: IRON SUCROSE
     Indication: Anaemia
     Dosage: 400 MILLIGRAM 1 IN 1 D
     Route: 042
     Dates: start: 20210720, end: 20210720
  2. VENOFER [Suspect]
     Active Substance: IRON SUCROSE
     Indication: Chronic kidney disease

REACTIONS (2)
  - Malaise [Recovered/Resolved]
  - Hypotension [Recovered/Resolved]

NARRATIVE: CASE EVENT DATE: 20210720
